FAERS Safety Report 5836878-4 (Version None)
Quarter: 2008Q3

REPORT INFORMATION
  Report Type: 
  Country: None (occurrence: None)
  Receive Date: 20080805
  Receipt Date: 20080723
  Transmission Date: 20090109
  Serious: No
  Sender: FDA-Public Use
  Company Number: LIT-08-0006-W

PATIENT
  Age: 39 Week
  Sex: Male

DRUGS (1)
  1. FLUOXETINE HCL [Suspect]

REACTIONS (4)
  - DRUG EXPOSURE VIA BREAST MILK [None]
  - GRUNTING [None]
  - MATERNAL DRUGS AFFECTING FOETUS [None]
  - TACHYPNOEA [None]
